FAERS Safety Report 7794444-8 (Version None)
Quarter: 2011Q4

REPORT INFORMATION
  Report Type: 
  Country: None (occurrence: None)
  Receive Date: 20111004
  Receipt Date: 20110928
  Transmission Date: 20120403
  Serious: Yes (Death)
  Sender: FDA-Public Use
  Company Number: AU-SANOFI-AVENTIS-2011SA063542

PATIENT
  Age: 75 Year
  Sex: Male

DRUGS (5)
  1. AVAPRO [Concomitant]
  2. NITROGLYCERIN [Concomitant]
  3. ASPIRIN [Concomitant]
  4. PREDNISONE [Concomitant]
  5. ARAVA [Suspect]
     Route: 048
     Dates: start: 20010208

REACTIONS (1)
  - DEATH [None]
